FAERS Safety Report 13897422 (Version 2)
Quarter: 2017Q3

REPORT INFORMATION
  Report Type: Spontaneous
  Country: JP (occurrence: JP)
  Receive Date: 20170823
  Receipt Date: 20170905
  Transmission Date: 20171127
  Serious: Yes (Other)
  Sender: FDA-Public Use
  Company Number: JP-PFIZER INC-2017359055

PATIENT
  Age: 65 Year
  Sex: Female

DRUGS (3)
  1. VONOPRAZAN [Concomitant]
     Active Substance: VONOPRAZAN
     Indication: HELICOBACTER INFECTION
     Dosage: 40 MG, UNK (FOR 7 DAYS)
     Dates: start: 201507
  2. AMOXICILLIN. [Suspect]
     Active Substance: AMOXICILLIN
     Indication: HELICOBACTER INFECTION
     Dosage: 1500 MG, UNK (FOR 7 DAYS)
     Dates: start: 201507
  3. METRONIDAZOLE. [Suspect]
     Active Substance: METRONIDAZOLE
     Indication: HELICOBACTER INFECTION
     Dosage: 500 MG, UNK (FOR 7 DAYS)
     Dates: start: 201507

REACTIONS (4)
  - Clostridium difficile colitis [Recovered/Resolved]
  - Type IV hypersensitivity reaction [Recovered/Resolved]
  - Superinfection [Recovered/Resolved]
  - Bacterial test positive [Recovered/Resolved]
